FAERS Safety Report 21762135 (Version 8)
Quarter: 2023Q4

REPORT INFORMATION
  Report Type: Report from Study
  Country: US (occurrence: US)
  Receive Date: 20221221
  Receipt Date: 20231018
  Transmission Date: 20240110
  Serious: Yes (Other)
  Sender: FDA-Public Use
  Company Number: US-002147023-NVSC2022US290609

PATIENT
  Age: 34 Year
  Sex: Female

DRUGS (1)
  1. KESIMPTA [Suspect]
     Active Substance: OFATUMUMAB
     Indication: Multiple sclerosis
     Dosage: UNK
     Route: 065
     Dates: start: 20221120

REACTIONS (11)
  - Multiple sclerosis relapse [Unknown]
  - Memory impairment [Not Recovered/Not Resolved]
  - Illness [Recovering/Resolving]
  - Urinary incontinence [Not Recovered/Not Resolved]
  - Hypoaesthesia [Unknown]
  - Allergic sinusitis [Recovering/Resolving]
  - Injection site pain [Recovered/Resolved]
  - Psoriasis [Unknown]
  - Skin exfoliation [Unknown]
  - Asthenopia [Unknown]
  - Brain fog [Unknown]

NARRATIVE: CASE EVENT DATE: 20230701
